FAERS Safety Report 9168113 (Version 1)
Quarter: 2013Q1

REPORT INFORMATION
  Report Type: Spontaneous
  Country: US (occurrence: None)
  Receive Date: 20130313
  Receipt Date: 20130313
  Transmission Date: 20140127
  Serious: Yes (Hospitalization)
  Sender: FDA-Public Use
  Company Number: 2012-506

PATIENT
  Age: 46 Year
  Sex: Female

DRUGS (1)
  1. PRIALT  (ZICONOTIDE)  INTRATHECAL  INFUSION [Suspect]
     Indication: PAIN
     Dosage: REGIMEN #2 0.07 MCG, ONCE/HOUR INTRATHECAL ONGOING?
     Dates: start: 201208

REACTIONS (8)
  - Implant site cellulitis [None]
  - Immune system disorder [None]
  - Quality of life decreased [None]
  - Pain [None]
  - Hypoaesthesia [None]
  - Paraesthesia [None]
  - Blood pressure decreased [None]
  - Implant site effusion [None]
